FAERS Safety Report 15131254 (Version 1)
Quarter: 2018Q3

REPORT INFORMATION
  Report Type: Report from Study
  Country: FR (occurrence: FR)
  Receive Date: 20180711
  Receipt Date: 20180711
  Transmission Date: 20181010
  Serious: Yes (Hospitalization, Disabling, Other)
  Sender: FDA-Public Use
  Company Number: FR-SA-2017SA255626

PATIENT
  Sex: Female

DRUGS (9)
  1. ISONIAZID/RIFAMPICIN [Suspect]
     Active Substance: ISONIAZID\RIFAMPIN
     Indication: TUBERCULOSIS
     Dosage: 2 DF,QD
     Route: 048
     Dates: start: 20151208, end: 20160308
  2. ABACAVIR SULFATE. [Suspect]
     Active Substance: ABACAVIR SULFATE
     Indication: HIV INFECTION
     Dosage: 1 DF,QD
     Route: 048
     Dates: start: 20150625
  3. DOLUTEGRAVIR [Suspect]
     Active Substance: DOLUTEGRAVIR
     Indication: HIV INFECTION
     Dosage: 50 MG,BID
     Route: 048
     Dates: start: 20150720, end: 20160308
  4. MYAMBUTOL [Suspect]
     Active Substance: ETHAMBUTOL HYDROCHLORIDE
     Dosage: 4 DF,QD
     Route: 048
     Dates: start: 20150720, end: 20151208
  5. DOLUTEGRAVIR [Suspect]
     Active Substance: DOLUTEGRAVIR
     Dosage: 50 QD
     Route: 048
     Dates: start: 20140910, end: 20150719
  6. KIVEXA [Concomitant]
     Active Substance: ABACAVIR SULFATE\LAMIVUDINE
     Indication: HIV INFECTION
     Dosage: UNK UNK,UNK
     Route: 065
     Dates: start: 20140910, end: 20150625
  7. ABACAVIR SULFATE. [Suspect]
     Active Substance: ABACAVIR SULFATE
     Dosage: UNK UNK,QD
     Route: 048
  8. MYAMBUTOL [Suspect]
     Active Substance: ETHAMBUTOL HYDROCHLORIDE
     Indication: TUBERCULOSIS
     Dosage: 1 DF,QD
     Route: 048
     Dates: start: 20150625, end: 20151208
  9. RIFATER [Suspect]
     Active Substance: ISONIAZID\PYRAZINAMIDE\RIFAMPIN
     Indication: TUBERCULOSIS
     Dosage: 6 DF,QD
     Route: 048
     Dates: start: 20150720, end: 20151208

REACTIONS (2)
  - Drug interaction [Unknown]
  - Urethral stenosis [Recovered/Resolved]

NARRATIVE: CASE EVENT DATE: 20150716
